FAERS Safety Report 9037751 (Version 1)
Quarter: 2013Q1

REPORT INFORMATION
  Report Type: Spontaneous
  Country: US (occurrence: US)
  Receive Date: 20130129
  Receipt Date: 20130129
  Transmission Date: 20140127
  Serious: No
  Sender: FDA-Public Use
  Company Number: US-009507513-1301USA008382

PATIENT
  Age: 20 Year
  Sex: Female

DRUGS (4)
  1. NUVARING [Suspect]
     Indication: CONTRACEPTION
     Route: 067
  2. LAMISIL [Concomitant]
  3. ZOLOFT [Concomitant]
  4. TRAZODONE HYDROCHLORIDE [Concomitant]

REACTIONS (1)
  - Menstrual disorder [Unknown]
